FAERS Safety Report 18568244 (Version 2)
Quarter: 2021Q1

REPORT INFORMATION
  Report Type: Spontaneous
  Country: US (occurrence: US)
  Receive Date: 20201202
  Receipt Date: 20210112
  Transmission Date: 20210419
  Serious: Yes (Other)
  Sender: FDA-Public Use
  Company Number: US-ASTRAZENECA-2020SF59229

PATIENT
  Age: 18724 Day
  Sex: Male
  Weight: 77.6 kg

DRUGS (1)
  1. BYDUREON BCISE [Suspect]
     Active Substance: EXENATIDE
     Indication: TYPE 2 DIABETES MELLITUS
     Route: 058

REACTIONS (5)
  - Incorrect dose administered by device [Unknown]
  - Brachial plexus injury [Unknown]
  - Intentional device misuse [Unknown]
  - Device leakage [Unknown]
  - Monoplegia [Unknown]

NARRATIVE: CASE EVENT DATE: 20201124
